FAERS Safety Report 12337687 (Version 9)
Quarter: 2019Q3

REPORT INFORMATION
  Report Type: Spontaneous
  Country: US (occurrence: US)
  Receive Date: 20160505
  Receipt Date: 20190816
  Transmission Date: 20191004
  Serious: Yes (Death)
  Sender: FDA-Public Use
  Company Number: US-B.I. PHARMACEUTICALS,INC./RIDGEFIELD-2016-BI-27982BI

PATIENT
  Age: 85 Year
  Sex: Female
  Weight: 113.4 kg

DRUGS (17)
  1. PRADAXA [Suspect]
     Active Substance: DABIGATRAN ETEXILATE MESYLATE
     Indication: ATRIAL FIBRILLATION
     Route: 048
     Dates: start: 20131202
  2. CITALOPRAM HYDROBROMIDE. [Concomitant]
     Active Substance: CITALOPRAM HYDROBROMIDE
     Indication: PRODUCT USED FOR UNKNOWN INDICATION
     Route: 048
  3. AVAPRO [Concomitant]
     Active Substance: IRBESARTAN
     Indication: PRODUCT USED FOR UNKNOWN INDICATION
     Route: 048
  4. GLYBURIDE. [Concomitant]
     Active Substance: GLYBURIDE
     Indication: PRODUCT USED FOR UNKNOWN INDICATION
     Route: 048
  5. SPIRIVA [Suspect]
     Active Substance: TIOTROPIUM BROMIDE MONOHYDRATE
     Indication: PRODUCT USED FOR UNKNOWN INDICATION
     Dosage: 1 PUFF DAILY
     Route: 055
  6. ALDACTONE [Concomitant]
     Active Substance: SPIRONOLACTONE
     Indication: PRODUCT USED FOR UNKNOWN INDICATION
     Dosage: TAKE 1 TABLET BY MOUTH
     Route: 048
  7. MICARDIS [Concomitant]
     Active Substance: TELMISARTAN
     Indication: CARDIAC DISORDER
  8. LEVOFLOXACIN. [Concomitant]
     Active Substance: LEVOFLOXACIN
     Indication: PRODUCT USED FOR UNKNOWN INDICATION
     Route: 048
     Dates: start: 20140128
  9. POTASSIUM CHLORIDE. [Concomitant]
     Active Substance: POTASSIUM CHLORIDE
     Indication: PRODUCT USED FOR UNKNOWN INDICATION
     Dosage: TAKE ONE TABLET BY MOUTH
     Route: 048
  10. ENOXAPARIN SODIUM. [Concomitant]
     Active Substance: ENOXAPARIN SODIUM
     Indication: PRODUCT USED FOR UNKNOWN INDICATION
     Dosage: FORM STRENGTH: 100 MG/ML; 1 ML SYRINGE
     Route: 065
  11. TYLENOL [Concomitant]
     Active Substance: ACETAMINOPHEN
     Indication: PRODUCT USED FOR UNKNOWN INDICATION
     Route: 065
  12. STARTON [Concomitant]
     Indication: PRODUCT USED FOR UNKNOWN INDICATION
     Route: 048
     Dates: start: 20140128
  13. METOPROLOL SUCCINATE. [Concomitant]
     Active Substance: METOPROLOL SUCCINATE
     Indication: CARDIAC DISORDER
     Dosage: TAKE ONE TABLET BY MOUTH EVERY DAY FOR HEART
     Route: 048
  14. TRAMADOL HCL [Concomitant]
     Active Substance: TRAMADOL HYDROCHLORIDE
     Indication: PRODUCT USED FOR UNKNOWN INDICATION
     Dosage: TAKE 1 TO 2 TABLETS BY MOUTH EVERY SIX HOURS AS NEEDED (MAX 8 TABLETS IN 24 HOURS)
     Route: 048
  15. LIPITOR [Concomitant]
     Active Substance: ATORVASTATIN CALCIUM
     Indication: PRODUCT USED FOR UNKNOWN INDICATION
     Dosage: TAKE ONE TABLET BY MOUTH
     Route: 048
  16. MICARDIS [Concomitant]
     Active Substance: TELMISARTAN
     Indication: BLOOD PRESSURE MEASUREMENT
     Dosage: TAKE ONE TABLET BY MOUTH EVERY DAY FOR BLOOD PRESSURE OR FOR HEART
     Route: 048
  17. TRIAMTERENE AND HYDROCHLOROTHIAZID [Concomitant]
     Active Substance: HYDROCHLOROTHIAZIDE\TRIAMTERENE
     Indication: PRODUCT USED FOR UNKNOWN INDICATION
     Dosage: FORM STRENGTH: 37.5-25 MG
     Route: 048

REACTIONS (2)
  - Cardiac arrest [Fatal]
  - Lower gastrointestinal haemorrhage [Fatal]

NARRATIVE: CASE EVENT DATE: 20140203
